FAERS Safety Report 8167258-7 (Version None)
Quarter: 2012Q1

REPORT INFORMATION
  Report Type: 
  Country: None (occurrence: None)
  Receive Date: 20120221
  Receipt Date: 20120209
  Transmission Date: 20120608
  Serious: Yes (Other)
  Sender: FDA-Public Use
  Company Number: 2012MA002108

PATIENT
  Age: 59 Year
  Sex: Female

DRUGS (2)
  1. MIRTAZAPINE [Suspect]
     Dosage: 45 MG
  2. MIRTAZAPINE [Suspect]
     Dosage: 45 MG

REACTIONS (6)
  - FEAR [None]
  - WHITE BLOOD CELL COUNT ABNORMAL [None]
  - HYPOAESTHESIA [None]
  - OROPHARYNGEAL PAIN [None]
  - OSTEOPOROSIS [None]
  - MOUTH ULCERATION [None]
